FAERS Safety Report 18747520 (Version 2)
Quarter: 2021Q1

REPORT INFORMATION
  Report Type: Report from Study
  Country: CA (occurrence: CA)
  Receive Date: 20210115
  Receipt Date: 20210213
  Transmission Date: 20210419
  Serious: Yes (Hospitalization, Other)
  Sender: FDA-Public Use
  Company Number: NVSC2021CA003684

PATIENT
  Age: 10 Year
  Sex: Male
  Weight: 28.6 kg

DRUGS (21)
  1. MORPHINE SULFATE. [Concomitant]
     Active Substance: MORPHINE SULFATE
     Indication: PAIN
     Dosage: 5 MG, PRN
     Route: 048
     Dates: start: 20200810
  2. PALONOSETRON. [Concomitant]
     Active Substance: PALONOSETRON HYDROCHLORIDE
     Dosage: 0.5 MG, ONCE/SINGLE
     Route: 042
     Dates: start: 20200821
  3. VENETOCLAX. [Suspect]
     Active Substance: VENETOCLAX
     Indication: REFRACTORY CANCER
     Dosage: 170 MG, QD (TABLET FOR ORAL SUSPENSION)
     Route: 048
     Dates: start: 20200817, end: 20200817
  4. VENETOCLAX. [Suspect]
     Active Substance: VENETOCLAX
     Dosage: 250 MG, QD
     Route: 048
     Dates: start: 20200818
  5. TOPOTECAN [Suspect]
     Active Substance: TOPOTECAN HYDROCHLORIDE
     Dosage: 0.75 MG/M2
     Route: 042
     Dates: start: 20201112
  6. CYCLOPHOSPHAMIDE. [Suspect]
     Active Substance: CYCLOPHOSPHAMIDE
     Indication: REFRACTORY CANCER
     Dosage: 240 MG/M2 (DAY 1?5 OF EACH 21 DAY CYCLE)
     Route: 042
     Dates: start: 20200819, end: 20200914
  7. VITAMIN D3 [Concomitant]
     Active Substance: CHOLECALCIFEROL
     Indication: VITAMIN SUPPLEMENTATION
     Dosage: 3000 IU
     Route: 048
     Dates: start: 20200813
  8. MORPHINE SULFATE. [Concomitant]
     Active Substance: MORPHINE SULFATE
     Dosage: 15 MG, BID
     Route: 048
     Dates: start: 20201001
  9. TOPOTECAN [Suspect]
     Active Substance: TOPOTECAN HYDROCHLORIDE
     Indication: REFRACTORY CANCER
     Dosage: 0.71 MG/M2
     Route: 042
     Dates: start: 20200819, end: 20200914
  10. VENETOCLAX. [Suspect]
     Active Substance: VENETOCLAX
     Dosage: 350 MG, QD
     Route: 048
     Dates: start: 20200818, end: 20201121
  11. SULFAMETOXAZOL/TRIMETOPRIM [Concomitant]
     Active Substance: SULFAMETHOXAZOLE\TRIMETHOPRIM
     Indication: INFECTION PROPHYLAXIS
     Dosage: 120 MG, QOD
     Route: 048
     Dates: start: 20200810
  12. TOPOTECAN [Suspect]
     Active Substance: TOPOTECAN HYDROCHLORIDE
     Dosage: 0.74 MG/M2
     Route: 042
     Dates: start: 20201001, end: 20201026
  13. LANSOPRAZOLE. [Concomitant]
     Active Substance: LANSOPRAZOLE
     Indication: PROPHYLAXIS
     Dosage: 30 MG, QD
     Route: 048
     Dates: start: 20200713
  14. CYCLOPHOSPHAMIDE. [Suspect]
     Active Substance: CYCLOPHOSPHAMIDE
     Dosage: 250 MG/M2 (DAY 1?5 OF EACH 21 DAY CYCLE)
     Route: 042
     Dates: start: 20200819, end: 20201116
  15. PALONOSETRON. [Concomitant]
     Active Substance: PALONOSETRON HYDROCHLORIDE
     Indication: PROPHYLAXIS OF NAUSEA AND VOMITING
     Dosage: 0.5 MG, ONCE/SINGLE
     Route: 042
     Dates: start: 20200819, end: 20200819
  16. LEVOFLOXACIN. [Concomitant]
     Active Substance: LEVOFLOXACIN
     Indication: INFECTION PROPHYLAXIS
     Dosage: 250 MG, QD
     Route: 048
     Dates: start: 20200728
  17. DEXAMETHASONE PHOSPHATE [Concomitant]
     Active Substance: DEXAMETHASONE PHOSPHATE
     Dosage: 4 MG, BID
     Route: 048
     Dates: start: 20201030
  18. TOPOTECAN [Suspect]
     Active Substance: TOPOTECAN HYDROCHLORIDE
     Dosage: 0.75 MG/M2 (MAXIMUM 5 DAYS EVERY 21 DAYS)
     Route: 042
     Dates: start: 20200819, end: 20201116
  19. CYCLOPHOSPHAMIDE. [Suspect]
     Active Substance: CYCLOPHOSPHAMIDE
     Dosage: 250 MG/M2 (DAY 1?5 OF EACH 21 DAY CYCLE)
     Route: 042
     Dates: start: 20201001
  20. DEXAMETHASONE PHOSPHATE [Concomitant]
     Active Substance: DEXAMETHASONE PHOSPHATE
     Indication: PROPHYLAXIS OF NAUSEA AND VOMITING
     Dosage: 4 MG, BID
     Route: 042
     Dates: start: 20200819, end: 20200823
  21. DEXAMETHASONE PHOSPHATE [Concomitant]
     Active Substance: DEXAMETHASONE PHOSPHATE
     Dosage: 4 MG, BID
     Route: 042
     Dates: start: 20200910, end: 20200914

REACTIONS (3)
  - Haematuria [Recovered/Resolved]
  - Product use issue [Unknown]
  - Haemorrhage urinary tract [Unknown]

NARRATIVE: CASE EVENT DATE: 20201220
